FAERS Safety Report 10597752 (Version 2)
Quarter: 2014Q4

REPORT INFORMATION
  Report Type: Spontaneous
  Country: SI (occurrence: SI)
  Receive Date: 20141121
  Receipt Date: 20141202
  Transmission Date: 20150529
  Serious: Yes (Life-Threatening)
  Sender: FDA-Public Use
  Company Number: SI-ROCHE-1494847

PATIENT
  Sex: Male

DRUGS (2)
  1. XOLAIR [Suspect]
     Active Substance: OMALIZUMAB
     Indication: ASTHMA
     Route: 065
  2. MEDROL [Concomitant]
     Active Substance: METHYLPREDNISOLONE

REACTIONS (1)
  - Asthma [Recovered/Resolved]
